FAERS Safety Report 5844250-6 (Version None)
Quarter: 2008Q3

REPORT INFORMATION
  Report Type: 
  Country: None (occurrence: None)
  Receive Date: 20080813
  Receipt Date: 20080805
  Transmission Date: 20090109
  Serious: Yes (Hospitalization)
  Sender: FDA-Public Use
  Company Number: PT-AMGEN-UK299886

PATIENT
  Sex: Female
  Weight: 49 kg

DRUGS (1)
  1. NEUPOGEN [Suspect]
     Indication: NEUTROPENIA
     Route: 042
     Dates: start: 20080721, end: 20080721

REACTIONS (2)
  - BACK PAIN [None]
  - NON-CARDIAC CHEST PAIN [None]
